FAERS Safety Report 8398601-1 (Version None)
Quarter: 2012Q2

REPORT INFORMATION
  Report Type: 
  Country: None (occurrence: None)
  Receive Date: 20120531
  Receipt Date: 20120525
  Transmission Date: 20120825
  Serious: Yes (Hospitalization, Other)
  Sender: FDA-Public Use
  Company Number: US-AMGEN-USASP2011065380

PATIENT
  Age: 74 Year
  Sex: Female
  Weight: 93.424 kg

DRUGS (8)
  1. ENBREL [Suspect]
     Dosage: 25 MG, QWK
     Route: 058
     Dates: start: 20051001, end: 20090101
  2. ENBREL [Suspect]
     Indication: PSORIATIC ARTHROPATHY
     Dosage: 50 MG, QWK
     Route: 058
     Dates: start: 20090101, end: 20090817
  3. ENBREL [Suspect]
     Dosage: 25 MG, QWK
     Route: 058
     Dates: start: 20090817, end: 20090903
  4. ENBREL [Suspect]
     Dosage: UNK
     Dates: start: 20051101, end: 20091201
  5. REMICADE [Suspect]
     Indication: PSORIATIC ARTHROPATHY
     Dosage: 3 MG, Q8MO
     Route: 042
     Dates: start: 20100920, end: 20110411
  6. ENBREL [Suspect]
     Indication: PSORIASIS
     Dosage: 25 MG, QWK
     Route: 058
     Dates: start: 20120423
  7. PLAQUENIL [Concomitant]
     Dosage: UNK
     Dates: start: 20110401
  8. STELARA [Concomitant]
     Dosage: UNK

REACTIONS (7)
  - SYSTEMIC LUPUS ERYTHEMATOSUS [None]
  - THERAPEUTIC RESPONSE DECREASED [None]
  - MOBILITY DECREASED [None]
  - HERPES ZOSTER [None]
  - RASH PRURITIC [None]
  - PSORIASIS [None]
  - PERICARDIAL EFFUSION [None]
